FAERS Safety Report 14633914 (Version 1)
Quarter: 2018Q1

REPORT INFORMATION
  Report Type: Report from Study
  Country: None (occurrence: US)
  Receive Date: 20180314
  Receipt Date: 20180314
  Transmission Date: 20180509
  Serious: Yes (Hospitalization, Other)
  Sender: FDA-Public Use
  Company Number: US-ABBVIE-18K-163-2276619-00

PATIENT
  Age: 68 Year
  Sex: Male
  Weight: 113.5 kg

DRUGS (2)
  1. HUMIRA [Suspect]
     Active Substance: ADALIMUMAB
     Indication: PSORIATIC ARTHROPATHY
     Route: 058
     Dates: start: 2007
  2. HUMIRA [Suspect]
     Active Substance: ADALIMUMAB
     Indication: PSORIASIS

REACTIONS (10)
  - Post procedural complication [Recovered/Resolved]
  - Sepsis [Recovered/Resolved]
  - Gastric ulcer [Recovered/Resolved]
  - Joint effusion [Recovered/Resolved]
  - Arthralgia [Recovered/Resolved]
  - Cataract [Recovering/Resolving]
  - Loss of consciousness [Recovered/Resolved]
  - Iritis [Recovering/Resolving]
  - Oesophageal food impaction [Recovering/Resolving]
  - Dyspnoea exertional [Not Recovered/Not Resolved]

NARRATIVE: CASE EVENT DATE: 2011
